FAERS Safety Report 9955666 (Version 1)
Quarter: 2014Q1

REPORT INFORMATION
  Report Type: Report from Study
  Country: US (occurrence: US)
  Receive Date: 20140304
  Receipt Date: 20140304
  Transmission Date: 20141002
  Serious: No
  Sender: FDA-Public Use
  Company Number: US-ABBVIE-13P-163-1084725-00

PATIENT
  Age: 67 Year
  Sex: Male

DRUGS (17)
  1. HUMIRA [Suspect]
     Indication: CROHN^S DISEASE
  2. SINGULAIR [Concomitant]
     Indication: SEASONAL ALLERGY
     Dosage: 10 MG DAILY
  3. OMEPRAZOLE [Concomitant]
     Indication: GASTROOESOPHAGEAL REFLUX DISEASE
     Dosage: 40 MG DAILY
  4. MICARDIS [Concomitant]
     Indication: HYPERTENSION
     Dosage: 80 MG DAILY
  5. METFORMIN [Concomitant]
     Indication: TYPE 2 DIABETES MELLITUS
     Dosage: 850 MG DAILY
  6. GLYBURIDE [Concomitant]
     Indication: TYPE 2 DIABETES MELLITUS
     Dosage: 3MG EVERY DAY
  7. METHOTREXATE [Concomitant]
     Indication: CROHN^S DISEASE
  8. METHOTREXATE [Concomitant]
     Indication: RHEUMATOID ARTHRITIS
  9. CYMBALTA [Concomitant]
     Indication: NEUROPATHY PERIPHERAL
     Dosage: 60 MG DAILY
  10. IRON [Concomitant]
     Indication: ANAEMIA
     Dosage: INFUSIONS AS NEEDED
     Route: 042
  11. VITAMIN C [Concomitant]
     Indication: NUTRITIONAL SUPPLEMENTATION
     Dosage: 1000 MG DAILY
  12. CALCIUM CITRATE [Concomitant]
     Indication: NUTRITIONAL SUPPLEMENTATION
  13. FISH OIL [Concomitant]
     Indication: NUTRITIONAL SUPPLEMENTATION
     Dosage: 4 DOSAGE FORMS DAILY
  14. VITAMIN D3 [Concomitant]
     Indication: NUTRITIONAL SUPPLEMENTATION
     Dosage: 2000 IU DAILY
  15. VITAMIN B12 [Concomitant]
     Indication: NUTRITIONAL SUPPLEMENTATION
  16. FLORASTOR [Concomitant]
     Indication: NUTRITIONAL SUPPLEMENTATION
     Dosage: PROBIOTIC
  17. ASACOL [Concomitant]
     Indication: PRODUCT USED FOR UNKNOWN INDICATION

REACTIONS (2)
  - Constipation [Unknown]
  - Blood cholesterol increased [Not Recovered/Not Resolved]
